FAERS Safety Report 7347760-8 (Version None)
Quarter: 2011Q1

REPORT INFORMATION
  Report Type: 
  Country: None (occurrence: None)
  Receive Date: 20110302
  Receipt Date: 20110215
  Transmission Date: 20110831
  Serious: Yes (Disabling, Other)
  Sender: FDA-Public Use
  Company Number: 025651

PATIENT
  Age: 65 Year
  Sex: Female
  Weight: 76 kg

DRUGS (11)
  1. OROCAL D (3) [Concomitant]
  2. CIMZIA [Suspect]
     Indication: RHEUMATOID ARTHRITIS
     Dosage: (200 MG 1X/2 WEEKS SUBCUTANEOUS)
     Route: 058
     Dates: start: 20101201
  3. MODURETIC 5-50 [Concomitant]
  4. ACTONEL [Concomitant]
  5. LEVOTHYROX [Concomitant]
  6. CRESTOR [Concomitant]
  7. TENORDATE [Concomitant]
  8. CORTANCYL [Concomitant]
  9. SPECIAFOLDINE [Concomitant]
  10. KALEORID [Concomitant]
  11. METOJECT /00113801/ [Concomitant]

REACTIONS (10)
  - LYMPHOMA [None]
  - LOSS OF CONSCIOUSNESS [None]
  - CEREBROVASCULAR ACCIDENT [None]
  - ARRHYTHMIA [None]
  - ATRIAL FIBRILLATION [None]
  - PROGRESSIVE MULTIFOCAL LEUKOENCEPHALOPATHY [None]
  - BRADYCARDIA [None]
  - APHASIA [None]
  - FALL [None]
  - ATRIAL FLUTTER [None]
